FAERS Safety Report 15696124 (Version 2)
Quarter: 2018Q4

REPORT INFORMATION
  Report Type: Spontaneous
  Country: US (occurrence: US)
  Receive Date: 20181206
  Receipt Date: 20181217
  Transmission Date: 20190205
  Serious: No
  Sender: FDA-Public Use
  Company Number: US-TEVA-2018-US-982807

PATIENT
  Age: 74 Year
  Sex: Female
  Weight: 79 kg

DRUGS (4)
  1. MODAFINIL. [Suspect]
     Active Substance: MODAFINIL
     Dosage: 400 MILLIGRAM DAILY; 200 MG MORNING, 200 MG EVENING
     Route: 065
     Dates: start: 201809
  2. CELEXA [Concomitant]
     Active Substance: CITALOPRAM HYDROBROMIDE
  3. ATIVAN [Concomitant]
     Active Substance: LORAZEPAM
  4. REMERON [Concomitant]
     Active Substance: MIRTAZAPINE

REACTIONS (2)
  - Drug effect variable [Unknown]
  - Product prescribing error [Unknown]

NARRATIVE: CASE EVENT DATE: 201809
